FAERS Safety Report 6813121-0 (Version None)
Quarter: 2010Q3

REPORT INFORMATION
  Report Type: 
  Country: None (occurrence: None)
  Receive Date: 20100701
  Receipt Date: 20100624
  Transmission Date: 20110219
  Serious: Yes (Other)
  Sender: FDA-Public Use
  Company Number: IE-PFIZER INC-2010078897

PATIENT
  Age: 45 Year
  Sex: Male

DRUGS (2)
  1. CHAMPIX [Suspect]
     Indication: SMOKING CESSATION THERAPY
     Dosage: UNK
     Route: 048
     Dates: start: 20100422, end: 20100501
  2. SERETIDE DISKUS [Concomitant]

REACTIONS (5)
  - ABNORMAL DREAMS [None]
  - AFFECTIVE DISORDER [None]
  - AGGRESSION [None]
  - NAUSEA [None]
  - NIGHTMARE [None]
